FAERS Safety Report 4371077-7 (Version None)
Quarter: 2004Q2

REPORT INFORMATION
  Report Type: 
  Country: None (occurrence: None)
  Receive Date: 20040604
  Receipt Date: 20040526
  Transmission Date: 20050107
  Serious: Yes (Death)
  Sender: FDA-Public Use
  Company Number: BE-MERCK-0405BEL00039

PATIENT
  Age: 49 Year
  Sex: Female
  Weight: 44 kg

DRUGS (2)
  1. CANCIDAS [Suspect]
     Indication: ASPERGILLOSIS
     Route: 042
     Dates: start: 20040328, end: 20040330
  2. FLUCONAZOLE [Concomitant]
     Indication: FUNGAL INFECTION
     Route: 042
     Dates: start: 20040325, end: 20040327

REACTIONS (1)
  - DEATH [None]
